FAERS Safety Report 9482742 (Version 2)
Quarter: 2013Q3

REPORT INFORMATION
  Report Type: Spontaneous
  Country: JP (occurrence: JP)
  Receive Date: 20130828
  Receipt Date: 20130903
  Transmission Date: 20140515
  Serious: Yes (Hospitalization, Other)
  Sender: FDA-Public Use
  Company Number: JP-BAYER-2013-102190

PATIENT
  Age: 67 Year
  Sex: Female

DRUGS (7)
  1. NEXAVAR [Suspect]
     Indication: RENAL CELL CARCINOMA
     Dosage: DAILY DOSE 800 MG
     Route: 048
     Dates: start: 200806
  2. NEXAVAR [Suspect]
     Indication: RENAL CELL CARCINOMA
     Route: 048
  3. INTERFERON [Concomitant]
     Indication: RENAL CELL CARCINOMA
     Dosage: UNK
  4. SUNITINIB [Concomitant]
     Indication: RENAL CELL CARCINOMA
     Dosage: DAILY DOSE 50 MG
     Route: 048
     Dates: start: 201001
  5. SUNITINIB [Concomitant]
     Indication: RENAL CELL CARCINOMA
     Dosage: DAILY DOSE 25 MG
     Route: 048
  6. SUNITINIB [Concomitant]
     Indication: RENAL CELL CARCINOMA
     Dosage: DAILY DOSE 50 MG
     Route: 048
     Dates: start: 201108
  7. SUNITINIB [Concomitant]
     Indication: RENAL CELL CARCINOMA
     Dosage: DAILY DOSE 25 MG
     Route: 048

REACTIONS (5)
  - Renal cell carcinoma [None]
  - Hilar lymphadenopathy [None]
  - Haemoptysis [None]
  - Decreased appetite [None]
  - Pleural effusion [None]
